FAERS Safety Report 5562463-8 (Version None)
Quarter: 2007Q4

REPORT INFORMATION
  Report Type: 
  Country: None (occurrence: None)
  Receive Date: 20071215
  Receipt Date: 20070703
  Transmission Date: 20080405
  Serious: No
  Sender: FDA-Public Use
  Company Number: US-AMGEN-US229743

PATIENT
  Sex: Female

DRUGS (8)
  1. ENBREL [Suspect]
     Indication: RHEUMATOID ARTHRITIS
     Route: 058
     Dates: start: 20030401
  2. ALEVE [Concomitant]
     Route: 065
  3. LISINOPRIL [Concomitant]
     Route: 065
  4. SYNTHROID [Concomitant]
     Route: 065
  5. GOLD [Concomitant]
     Route: 065
  6. PREDNISONE [Concomitant]
     Route: 065
  7. CALCIUM [Concomitant]
     Route: 065
  8. VITAMIN D [Concomitant]
     Route: 065

REACTIONS (9)
  - DRY EYE [None]
  - EXOSTOSIS [None]
  - FATIGUE [None]
  - INJECTION SITE BRUISING [None]
  - NASOPHARYNGITIS [None]
  - OSTEOARTHRITIS [None]
  - PHARYNGOLARYNGEAL PAIN [None]
  - RASH [None]
  - SINUS CONGESTION [None]
